FAERS Safety Report 8742978 (Version 3)
Quarter: 2012Q4

REPORT INFORMATION
  Report Type: Report from Study
  Country: JP (occurrence: JP)
  Receive Date: 20120824
  Receipt Date: 20121108
  Transmission Date: 20130627
  Serious: Yes (Hospitalization)
  Sender: FDA-Public Use
  Company Number: JP-JNJFOC-20120811366

PATIENT
  Age: 75 Year
  Sex: Female
  Weight: 47 kg

DRUGS (21)
  1. GOLIMUMAB [Suspect]
     Indication: RHEUMATOID ARTHRITIS
     Route: 058
     Dates: start: 20120612
  2. GOLIMUMAB [Suspect]
     Indication: RHEUMATOID ARTHRITIS
     Route: 058
     Dates: start: 20120417
  3. GOLIMUMAB [Suspect]
     Indication: RHEUMATOID ARTHRITIS
     Route: 058
     Dates: start: 20111206
  4. METHOTREXATE [Suspect]
     Indication: RHEUMATOID ARTHRITIS
     Route: 048
     Dates: start: 20120508, end: 20120509
  5. METHOTREXATE [Suspect]
     Indication: RHEUMATOID ARTHRITIS
     Route: 048
     Dates: start: 20120411, end: 20120419
  6. METHOTREXATE [Suspect]
     Indication: RHEUMATOID ARTHRITIS
     Route: 048
     Dates: start: 20120321, end: 20120321
  7. METHOTREXATE [Suspect]
     Indication: RHEUMATOID ARTHRITIS
     Route: 048
     Dates: start: 20120308, end: 20120308
  8. METHOTREXATE [Suspect]
     Indication: RHEUMATOID ARTHRITIS
     Route: 048
     Dates: start: 20120507
  9. METHOTREXATE [Suspect]
     Indication: RHEUMATOID ARTHRITIS
     Route: 048
     Dates: start: 20120301, end: 20120301
  10. PREDNISOLONE [Concomitant]
     Indication: RHEUMATOID ARTHRITIS
     Route: 048
     Dates: start: 20120327
  11. PREDNISOLONE [Concomitant]
     Indication: RHEUMATOID ARTHRITIS
     Route: 048
     Dates: end: 20120326
  12. SALAZOSULFAPYRIDINE [Concomitant]
     Indication: RHEUMATOID ARTHRITIS
     Dates: start: 20090514, end: 20120327
  13. MIZORIBINE [Concomitant]
     Indication: RHEUMATOID ARTHRITIS
     Route: 048
     Dates: start: 20090514
  14. DICLOFENAC [Concomitant]
     Route: 054
  15. FLURBIPROFEN [Concomitant]
     Indication: RHEUMATOID ARTHRITIS
  16. CETRAXATE HYDROCHLORIDE [Concomitant]
     Indication: PROPHYLAXIS
     Route: 048
  17. ALFACALCIDOL [Concomitant]
     Indication: OSTEOPOROSIS
  18. ASPARA-CA [Concomitant]
     Indication: OSTEOPOROSIS
  19. CANDESARTAN + HYDROCHLOROTHIAZIDE [Concomitant]
     Route: 048
  20. EDIROL [Concomitant]
     Indication: PROPHYLAXIS
     Route: 048
  21. REBAMIPIDE [Concomitant]
     Indication: PROPHYLAXIS

REACTIONS (2)
  - Urinary tract infection [Recovered/Resolved]
  - Pancytopenia [Recovered/Resolved]
